FAERS Safety Report 9346728 (Version 2)
Quarter: 2013Q3

REPORT INFORMATION
  Report Type: Spontaneous
  Country: US (occurrence: US)
  Receive Date: 20130613
  Receipt Date: 20130719
  Transmission Date: 20140515
  Serious: No
  Sender: FDA-Public Use
  Company Number: US-PFIZER INC-2013177207

PATIENT
  Age: 64 Year
  Sex: Female
  Weight: 104.31 kg

DRUGS (2)
  1. ZOLOFT [Suspect]
     Indication: ANXIETY DISORDER
     Dosage: UNK, 1X/DAY
     Route: 048
     Dates: end: 201305
  2. ZOLOFT [Suspect]
     Indication: PANIC DISORDER
     Dosage: UNK, 1X/DAY
     Route: 048
     Dates: start: 201306

REACTIONS (9)
  - Incorrect dose administered [Unknown]
  - Hostility [Recovered/Resolved]
  - Withdrawal syndrome [Recovered/Resolved]
  - Drug ineffective [Recovered/Resolved]
  - Crying [Recovered/Resolved]
  - Negative thoughts [Recovered/Resolved]
  - Skin atrophy [Recovered/Resolved]
  - Psychomotor hyperactivity [Recovered/Resolved]
  - Emotional disorder [Recovered/Resolved]
